FAERS Safety Report 4566359-X (Version None)
Quarter: 2005Q1

REPORT INFORMATION
  Report Type: 
  Country: None (occurrence: None)
  Receive Date: 20050126
  Receipt Date: 20050126
  Transmission Date: 20050727
  Serious: Yes (Other)
  Sender: FDA-Public Use
  Company Number: None

PATIENT
  Age: 53 Year
  Sex: Male
  Weight: 115.7 kg

DRUGS (4)
  1. LOVASTATIN [Suspect]
  2. SILDENAFIL CITRATE [Concomitant]
  3. ACETAMINOPHEN [Concomitant]
  4. COLESTIPOL HCL [Concomitant]

REACTIONS (1)
  - BLOOD CREATINE PHOSPHOKINASE INCREASED [None]
